FAERS Safety Report 5524983-1 (Version None)
Quarter: 2007Q4

REPORT INFORMATION
  Report Type: 
  Country: None (occurrence: None)
  Receive Date: 20071119
  Receipt Date: 20071108
  Transmission Date: 20080405
  Serious: Yes (Hospitalization)
  Sender: FDA-Public Use
  Company Number: 2007BI019253

PATIENT
  Age: 38 Year
  Sex: Male

DRUGS (1)
  1. AVONEX [Suspect]
     Indication: MULTIPLE SCLEROSIS
     Dosage: 30 UG; QW; IM
     Route: 030
     Dates: start: 20060330, end: 20070822

REACTIONS (4)
  - DRUG HYPERSENSITIVITY [None]
  - DRUG THERAPY CHANGED [None]
  - INFLUENZA LIKE ILLNESS [None]
  - PNEUMONIA [None]
